FAERS Safety Report 6221348-4 (Version None)
Quarter: 2009Q2

REPORT INFORMATION
  Report Type: 
  Country: None (occurrence: None)
  Receive Date: 20090608
  Receipt Date: 20090603
  Transmission Date: 20091009
  Serious: Yes (Death)
  Sender: FDA-Public Use
  Company Number: 2009SP007606

PATIENT
  Age: 12 Year
  Sex: Male
  Weight: 38 kg

DRUGS (8)
  1. NOXAFIL [Suspect]
     Indication: FUNGAL INFECTION
     Dosage: 200 MG; QID; PO, 400 MG; BID; PO
     Route: 048
     Dates: start: 20080424, end: 20080508
  2. NOXAFIL [Suspect]
     Indication: FUNGAL INFECTION
     Dosage: 200 MG; QID; PO, 400 MG; BID; PO
     Route: 048
     Dates: start: 20080516, end: 20080704
  3. VINCRISTINE [Suspect]
     Indication: LEUKAEMIA
     Dosage: ; QW;
     Dates: start: 20080428, end: 20080505
  4. AMPHOTERICIN B [Concomitant]
  5. LEVETIRACETAM [Concomitant]
  6. RANITIDINE [Concomitant]
  7. ONDANSETRON [Concomitant]
  8. KETOPROFEN [Concomitant]

REACTIONS (11)
  - BLOOD ALKALINE PHOSPHATASE INCREASED [None]
  - CONDITION AGGRAVATED [None]
  - DRUG INEFFECTIVE [None]
  - DRUG INTERACTION [None]
  - ILEUS [None]
  - LEUKAEMIA [None]
  - MALIGNANT NEOPLASM PROGRESSION [None]
  - NAUSEA [None]
  - PAIN [None]
  - VOMITING [None]
  - ZYGOMYCOSIS [None]
